FAERS Safety Report 24148687 (Version 2)
Quarter: 2024Q3

REPORT INFORMATION
  Report Type: Report from Study
  Country: CO (occurrence: CO)
  Receive Date: 20240729
  Receipt Date: 20240822
  Transmission Date: 20241017
  Serious: Yes (Hospitalization)
  Sender: MYLAN
  Company Number: CO-MYLANLABS-2024M1069529

PATIENT
  Age: 10 Year
  Sex: Male
  Weight: 18 kg

DRUGS (12)
  1. CYSTAGON [Suspect]
     Active Substance: CYSTEAMINE BITARTRATE
     Indication: Cystinosis
     Dosage: 1500 MILLIGRAM, QD (PER DAY)
     Route: 048
     Dates: start: 20140402
  2. CYSTEAMINE HYDROCHLORIDE [Suspect]
     Active Substance: CYSTEAMINE HYDROCHLORIDE
     Indication: Cystinosis
     Dosage: 2 GTT DROPS, Q6H
     Route: 047
     Dates: start: 20160917
  3. ENALAPRIL [Concomitant]
     Active Substance: ENALAPRIL
     Indication: Blood pressure measurement
     Dosage: 1 MILLIGRAM, QD
     Route: 065
  4. CYSTEAMINE BITARTRATE [Concomitant]
     Active Substance: CYSTEAMINE BITARTRATE
     Indication: Fanconi syndrome
     Dosage: 100 MILLIGRAM, Q6H
     Route: 065
  5. SPIRONOLACTONE [Concomitant]
     Active Substance: SPIRONOLACTONE
     Indication: Hypertension
     Dosage: 12.5 MILLIGRAM, QD (EVERY 24 H)
     Route: 065
  6. LEVOTHYROXINE [Concomitant]
     Active Substance: LEVOTHYROXINE\LEVOTHYROXINE SODIUM
     Indication: Hyperparathyroidism
     Dosage: 50 MICROGRAM
     Route: 065
  7. LEVOTHYROXINE [Concomitant]
     Active Substance: LEVOTHYROXINE\LEVOTHYROXINE SODIUM
     Dosage: 25 MICROGRAM
     Route: 065
  8. FERROUS SULFATE [Concomitant]
     Active Substance: FERROUS SULFATE
     Indication: Anaemia
     Dosage: 20 GTT DROPS, QD (EVERY 24 HOURS)
     Route: 065
  9. FOLIC ACID [Concomitant]
     Active Substance: FOLIC ACID
     Indication: Vitamin supplementation
     Dosage: 1 MILLIGRAM, QD (EVERY 24 H)
     Route: 065
  10. Kidcal [Concomitant]
     Indication: Mineral supplementation
     Dosage: 10 CUBIC CENTIMETERS, Q8H
     Route: 065
  11. CALCIUM CARBONATE [Concomitant]
     Active Substance: CALCIUM CARBONATE
     Indication: Mineral supplementation
     Dosage: 600 MILLIGRAM, Q8H (EVERY 8 H)
     Route: 065
  12. ASCORBIC ACID [Concomitant]
     Active Substance: ASCORBIC ACID
     Indication: Vitamin supplementation
     Dosage: 20 GTT DROPS, QD (EVERY 24 H)
     Route: 065

REACTIONS (1)
  - Peritonitis [Not Recovered/Not Resolved]

NARRATIVE: CASE EVENT DATE: 20240713
